FAERS Safety Report 10750733 (Version 1)
Quarter: 2015Q1

REPORT INFORMATION
  Report Type: Spontaneous
  Country: US (occurrence: None)
  Receive Date: 20150126
  Receipt Date: 20150126
  Transmission Date: 20150721
  Serious: Yes (Other)
  Sender: FDA-Public Use
  Company Number: A-NJ2014-107762

PATIENT
  Age: 17 Year
  Sex: Female
  Weight: 50.3 kg

DRUGS (4)
  1. SILDENAFIL. [Concomitant]
     Active Substance: SILDENAFIL
  2. TRACLEER [Suspect]
     Active Substance: BOSENTAN\BOSENTAN MONOHYDRATE
     Indication: PULMONARY ARTERIAL HYPERTENSION
     Route: 048
     Dates: start: 20140602, end: 20140930
  3. COUMADIN [Concomitant]
     Active Substance: WARFARIN SODIUM
  4. REMODULIN [Suspect]
     Active Substance: TREPROSTINIL
     Indication: PULMONARY ARTERIAL HYPERTENSION
     Dosage: 33
     Route: 042
     Dates: start: 20140425

REACTIONS (1)
  - Liver function test abnormal [None]

NARRATIVE: CASE EVENT DATE: 2014
